FAERS Safety Report 23241957 (Version 1)
Quarter: 2023Q4

REPORT INFORMATION
  Report Type: Spontaneous
  Country: US (occurrence: None)
  Receive Date: 20231129
  Receipt Date: 20231129
  Transmission Date: 20240109
  Serious: Yes (Other)
  Sender: FDA-Public Use
  Company Number: None

PATIENT
  Age: 43 Year
  Sex: Female
  Weight: 91.35 kg

DRUGS (4)
  1. LEVOTHYROXINE [Suspect]
     Active Substance: LEVOTHYROXINE
     Indication: Hypothyroidism
     Dates: start: 20231116
  2. QULIPTA [Concomitant]
     Active Substance: ATOGEPANT
  3. DULOXETINE [Concomitant]
     Active Substance: DULOXETINE
  4. PREGABALIN [Concomitant]
     Active Substance: PREGABALIN

REACTIONS (6)
  - Myalgia [None]
  - Bone pain [None]
  - Arthralgia [None]
  - Influenza like illness [None]
  - Limb discomfort [None]
  - Musculoskeletal discomfort [None]

NARRATIVE: CASE EVENT DATE: 20231128
